FAERS Safety Report 25113784 (Version 1)
Quarter: 2025Q1

REPORT INFORMATION
  Report Type: Spontaneous
  Country: US (occurrence: US)
  Receive Date: 20250324
  Receipt Date: 20250324
  Transmission Date: 20250409
  Serious: No
  Sender: AMARIN
  Company Number: US-Amarin Pharma  Inc-2025AMR000134

PATIENT
  Age: 72 Year
  Sex: Male

DRUGS (1)
  1. VASCEPA [Suspect]
     Active Substance: ICOSAPENT ETHYL
     Indication: Blood triglycerides
     Dates: start: 2023

REACTIONS (15)
  - Asthenia [Not Recovered/Not Resolved]
  - Lethargy [Not Recovered/Not Resolved]
  - Feeling abnormal [Unknown]
  - Memory impairment [Unknown]
  - Trigger finger [Not Recovered/Not Resolved]
  - Rotator cuff syndrome [Unknown]
  - Tendon rupture [Unknown]
  - Laboratory test abnormal [Unknown]
  - Blood triglycerides increased [Unknown]
  - Contusion [Unknown]
  - Myalgia [Not Recovered/Not Resolved]
  - Poor quality product administered [Unknown]
  - Product odour abnormal [Unknown]
  - Product taste abnormal [Unknown]
  - Product physical issue [Unknown]

NARRATIVE: CASE EVENT DATE: 20241101
